FAERS Safety Report 9490254 (Version 1)
Quarter: 2013Q3

REPORT INFORMATION
  Report Type: Spontaneous
  Country: US (occurrence: US)
  Receive Date: 20130830
  Receipt Date: 20130830
  Transmission Date: 20140515
  Serious: Yes (Other)
  Sender: FDA-Public Use
  Company Number: US-BIOGENIDEC-2013BI080692

PATIENT
  Age: 47 Year
  Sex: Female

DRUGS (2)
  1. AVONEX [Suspect]
     Indication: MULTIPLE SCLEROSIS
     Route: 030
  2. COPAXONE [Concomitant]

REACTIONS (16)
  - Convulsion [Unknown]
  - Tremor [Unknown]
  - Colour blindness [Unknown]
  - Fall [Recovered/Resolved]
  - Hypoaesthesia [Unknown]
  - Weight decreased [Unknown]
  - Injection site bruising [Unknown]
  - Heat stroke [Unknown]
  - Injection site swelling [Unknown]
  - Multiple fractures [Unknown]
  - Thermal burn [Unknown]
  - Laceration [Unknown]
  - Vomiting [Unknown]
  - Injection site pain [Unknown]
  - Multiple sclerosis relapse [Unknown]
  - Drug hypersensitivity [Unknown]
